FAERS Safety Report 9192879 (Version 3)
Quarter: 2014Q1

REPORT INFORMATION
  Report Type: Spontaneous
  Country: US (occurrence: US)
  Receive Date: 20130327
  Receipt Date: 20140110
  Transmission Date: 20141002
  Serious: Yes (Other)
  Sender: FDA-Public Use
  Company Number: US-PFIZER INC-2013074040

PATIENT
  Age: 55 Year
  Sex: Female

DRUGS (1)
  1. CHANTIX [Suspect]
     Indication: SMOKING CESSATION THERAPY
     Dosage: UNK, 1X/DAY
     Dates: start: 20121010, end: 20130108

REACTIONS (13)
  - Agitation [Unknown]
  - Depressed mood [Unknown]
  - Binge eating [Recovered/Resolved]
  - Abnormal behaviour [Unknown]
  - Dizziness [Recovered/Resolved]
  - Sedation [Recovered/Resolved]
  - Abnormal dreams [Unknown]
  - Insomnia [Unknown]
  - Constipation [Recovered/Resolved]
  - Fatigue [Unknown]
  - Weight increased [Recovering/Resolving]
  - Local swelling [Unknown]
  - Pain in extremity [Unknown]
